FAERS Safety Report 19515988 (Version 1)
Quarter: 2021Q3

REPORT INFORMATION
  Report Type: Spontaneous
  Country: US (occurrence: US)
  Receive Date: 20210710
  Receipt Date: 20210710
  Transmission Date: 20211014
  Serious: No
  Sender: FDA-Public Use
  Company Number: US-JNJFOC-20210665017

PATIENT

DRUGS (1)
  1. ROGAINE [Suspect]
     Active Substance: MINOXIDIL
     Indication: PRODUCT USED FOR UNKNOWN INDICATION
     Dosage: A CAP 4?5 TIMES A WEEK
     Route: 065

REACTIONS (3)
  - Hair growth abnormal [Unknown]
  - Overdose [Unknown]
  - Inappropriate schedule of product administration [Unknown]
